FAERS Safety Report 20128143 (Version 3)
Quarter: 2022Q1

REPORT INFORMATION
  Report Type: Spontaneous
  Country: PT (occurrence: PT)
  Receive Date: 20211129
  Receipt Date: 20220207
  Transmission Date: 20220423
  Serious: Yes (Hospitalization, Other)
  Sender: FDA-Public Use
  Company Number: PT-CELLTRION INC.-2021PT016047

PATIENT

DRUGS (14)
  1. TRUXIMA [Suspect]
     Active Substance: RITUXIMAB-ABBS
     Indication: End stage renal disease
     Dosage: 650 MG (375 MG/M2)
     Route: 042
  2. TRUXIMA [Suspect]
     Active Substance: RITUXIMAB-ABBS
     Indication: Glomerulonephritis rapidly progressive
  3. PREDNISOLONE [Suspect]
     Active Substance: PREDNISOLONE
     Indication: End stage renal disease
     Dosage: 50 MG WEEKLY FOR 4 WEEKS
     Route: 042
  4. PREDNISOLONE [Suspect]
     Active Substance: PREDNISOLONE
     Indication: Glomerulonephritis rapidly progressive
  5. PANTOPRAZOLE [Concomitant]
     Active Substance: PANTOPRAZOLE
     Dosage: 20MG- 1 TABLET
  6. FUROSEMIDE [Concomitant]
     Active Substance: FUROSEMIDE
     Dosage: 40MG 1 TABLET
  7. IRBESARTAN [Concomitant]
     Active Substance: IRBESARTAN
     Dosage: 300MG - 1 TABLET
  8. NIFEDIPINE [Concomitant]
     Active Substance: NIFEDIPINE
     Dosage: CR30MG- 1 TABLET
  9. BISOPROLOL [Concomitant]
     Active Substance: BISOPROLOL
     Dosage: 10MG- 1 TABLET
  10. ALLOPURINOL [Concomitant]
     Active Substance: ALLOPURINOL
     Dosage: 100MG - 1 TABLET
  11. SEVELAMER [Concomitant]
     Active Substance: SEVELAMER
     Dosage: 800MG 2CP
  12. LORAZEPAM [Concomitant]
     Active Substance: LORAZEPAM
     Dosage: 0.5 MG - 1 TABLET
  13. SERTRALINE [Concomitant]
     Active Substance: SERTRALINE HYDROCHLORIDE
     Dosage: 50MG- 1 TABLET
  14. DARBEPOETIN ALFA [Concomitant]
     Active Substance: DARBEPOETIN ALFA
     Dosage: 30MCG WEEKLY - 1X/WEEK.

REACTIONS (2)
  - Bone tuberculosis [Unknown]
  - Off label use [Unknown]

NARRATIVE: CASE EVENT DATE: 20200701
